FAERS Safety Report 9016093 (Version 2)
Quarter: 2013Q2

REPORT INFORMATION
  Report Type: Spontaneous
  Country: SI (occurrence: SI)
  Receive Date: 20130116
  Receipt Date: 20130510
  Transmission Date: 20140414
  Serious: Yes (Hospitalization)
  Sender: FDA-Public Use
  Company Number: PHHY2013SI002541

PATIENT
  Age: 58 Year
  Sex: Female

DRUGS (6)
  1. METHOTREXATE [Suspect]
     Indication: RHEUMATOID ARTHRITIS
     Dosage: 10 TO12.5 MG ONCE A WEEK
     Dates: start: 1991
  2. FOLIC ACID [Concomitant]
     Dosage: 5 MG, QW
  3. ENALAPRIL [Concomitant]
  4. CALCITRIOL [Concomitant]
  5. METHYLPREDNISOLONE [Concomitant]
  6. CALCIUM [Concomitant]

REACTIONS (16)
  - Secondary amyloidosis [Recovered/Resolved]
  - Dysphagia [Recovered/Resolved]
  - Burning sensation mucosal [Recovered/Resolved]
  - Glossodynia [Recovered/Resolved]
  - Gingival pain [Recovered/Resolved]
  - Perianal erythema [Recovered/Resolved]
  - Anorectal discomfort [Recovered/Resolved]
  - Pancytopenia [Recovered/Resolved]
  - Petechiae [Recovered/Resolved]
  - Abdominal wall haematoma [Recovered/Resolved]
  - Bacterial infection [Recovered/Resolved]
  - Renal failure [Recovered/Resolved]
  - Bone marrow disorder [Recovered/Resolved]
  - Erythropoiesis abnormal [Unknown]
  - Oral mucosal erythema [Recovered/Resolved]
  - Stomatitis [Recovered/Resolved]
